FAERS Safety Report 20510971 (Version 1)
Quarter: 2022Q1

REPORT INFORMATION
  Report Type: Spontaneous
  Country: JP (occurrence: JP)
  Receive Date: 20220224
  Receipt Date: 20220224
  Transmission Date: 20220423
  Serious: Yes (Other)
  Sender: FDA-Public Use
  Company Number: JP-SA-SAC20220222000309

PATIENT
  Age: 71 Year
  Sex: Female

DRUGS (2)
  1. OXALIPLATIN [Suspect]
     Active Substance: OXALIPLATIN
     Indication: Rectal cancer
     Route: 041
  2. FLUOROURACIL [Suspect]
     Active Substance: FLUOROURACIL
     Indication: Rectal cancer
     Route: 041

REACTIONS (1)
  - Hyperammonaemia [Recovered/Resolved]
